FAERS Safety Report 16656101 (Version 1)
Quarter: 2019Q3

REPORT INFORMATION
  Report Type: Spontaneous
  Country: US (occurrence: US)
  Receive Date: 20190731
  Receipt Date: 20190731
  Transmission Date: 20191004
  Serious: Yes (Other)
  Sender: FDA-Public Use
  Company Number: None

PATIENT
  Age: 61 Year
  Sex: Female

DRUGS (4)
  1. AMLODIPINE 5 [Concomitant]
     Dates: start: 20190626, end: 20190726
  2. IBRANCE [Suspect]
     Active Substance: PALBOCICLIB
     Indication: BREAST CANCER METASTATIC
     Route: 048
     Dates: start: 20190131, end: 20190718
  3. HYDROCODONE/ACETAMINOPHEN 05/325 [Concomitant]
     Dates: start: 20190626, end: 20190726
  4. VOLTAREN [Concomitant]
     Active Substance: DICLOFENAC SODIUM
     Dates: start: 20190626, end: 20190726

REACTIONS (3)
  - Pain [None]
  - Constipation [None]
  - Stomatitis [None]

NARRATIVE: CASE EVENT DATE: 20190701
